FAERS Safety Report 6452687-X (Version None)
Quarter: 2009Q4

REPORT INFORMATION
  Report Type: 
  Country: None (occurrence: None)
  Receive Date: 20091123
  Receipt Date: 20091123
  Transmission Date: 20100525
  Serious: No
  Sender: FDA-Public Use
  Company Number: None

PATIENT
  Sex: Female
  Weight: 89.3586 kg

DRUGS (1)
  1. METFORMIN HCL [Suspect]
     Indication: DIABETES MELLITUS INADEQUATE CONTROL
     Dosage: 2 TABLETS BID PO
     Route: 048
     Dates: start: 20090429, end: 20090828

REACTIONS (1)
  - DIARRHOEA [None]
